FAERS Safety Report 6039382-6 (Version None)
Quarter: 2009Q1

REPORT INFORMATION
  Report Type: 
  Country: None (occurrence: None)
  Receive Date: 20090114
  Receipt Date: 20090108
  Transmission Date: 20090719
  Serious: Yes (Hospitalization, Disabling, Other)
  Sender: FDA-Public Use
  Company Number: 09BR001124

PATIENT
  Age: 44 Year
  Sex: Female

DRUGS (4)
  1. LITHIUM CARBONATE [Suspect]
     Indication: BIPOLAR DISORDER
     Dosage: 1200 MG, QD, ORAL
     Route: 048
  2. LITHIUM CARBONATE [Suspect]
     Indication: PSYCHOTIC DISORDER
     Dosage: 1200 MG, QD, ORAL
     Route: 048
  3. HALOPERIDOL [Concomitant]
  4. CHLORPROMAZINE [Concomitant]

REACTIONS (13)
  - AGITATION [None]
  - DEPRESSION [None]
  - DISEASE COMPLICATION [None]
  - DYSARTHRIA [None]
  - ENCEPHALOPATHY [None]
  - HYPOMANIA [None]
  - INTENTIONAL OVERDOSE [None]
  - LOWER RESPIRATORY TRACT INFECTION [None]
  - MANIA [None]
  - NEUROTOXICITY [None]
  - NYSTAGMUS [None]
  - POISONING [None]
  - SUICIDE ATTEMPT [None]
